FAERS Safety Report 15220514 (Version 4)
Quarter: 2018Q4

REPORT INFORMATION
  Report Type: Spontaneous
  Country: FR (occurrence: FR)
  Receive Date: 20180731
  Receipt Date: 20181009
  Transmission Date: 20190204
  Serious: Yes (Disabling, Other)
  Sender: FDA-Public Use
  Company Number: FR-MYLANLABS-2018M1055183

PATIENT
  Age: 77 Year
  Sex: Male

DRUGS (6)
  1. VORICONAZOLE. [Suspect]
     Active Substance: VORICONAZOLE
     Indication: BRONCHOPULMONARY ASPERGILLOSIS
     Dosage: UNK (DOSE REDUCED)
  2. VORICONAZOLE. [Suspect]
     Active Substance: VORICONAZOLE
     Dosage: 200 MG, 2X/DAY
  3. VORICONAZOLE. [Suspect]
     Active Substance: VORICONAZOLE
     Dosage: 200 MG, DAILY (HALVED)
  4. VORICONAZOLE. [Suspect]
     Active Substance: VORICONAZOLE
     Dosage: 100 MG, QD (REDUCED)
  5. VORICONAZOLE. [Suspect]
     Active Substance: VORICONAZOLE
     Dosage: UNK
  6. VORICONAZOLE. [Suspect]
     Active Substance: VORICONAZOLE
     Dosage: 400 MG, QD

REACTIONS (7)
  - Dyschromatopsia [Recovered/Resolved]
  - Retinal toxicity [Recovered/Resolved]
  - Hallucination, visual [Recovered/Resolved]
  - Photophobia [Not Recovered/Not Resolved]
  - Visual field defect [Recovered/Resolved]
  - Macular opacity [Recovered/Resolved]
  - Vision blurred [Recovered/Resolved]
